FAERS Safety Report 9633450 (Version 1)
Quarter: 2013Q4

REPORT INFORMATION
  Report Type: Spontaneous
  Country: PL (occurrence: PL)
  Receive Date: 20131021
  Receipt Date: 20131021
  Transmission Date: 20140711
  Serious: Yes (Other)
  Sender: FDA-Public Use
  Company Number: PL-ELI_LILLY_AND_COMPANY-PL201310002838

PATIENT
  Age: 58 Year
  Sex: Female

DRUGS (10)
  1. HUMULIN NPH [Suspect]
     Indication: TYPE 2 DIABETES MELLITUS
     Dosage: 32 U, EACH MORNING
     Dates: start: 2008
  2. HUMALOG 25% LISPRO, 75% NPL [Suspect]
     Indication: HYPOGLYCAEMIA
     Dosage: UNK, BID
  3. HUMALOG 25% LISPRO, 75% NPL [Suspect]
     Dosage: 12 U, EACH EVENING
  4. HUMALOG 50% LISPRO, 50% NPL [Concomitant]
     Indication: HYPOGLYCAEMIA
     Dosage: 18 U, EACH MORNING
  5. HUMALOG 50% LISPRO, 50% NPL [Concomitant]
     Dosage: 14 U, QD
  6. TRITACE [Concomitant]
     Dosage: 5 MG, BID
  7. ATORIS [Concomitant]
     Dosage: 30 DF, QD
  8. VICEBROL [Concomitant]
     Dosage: UNK, QD
  9. RUTINOSCORBIN [Concomitant]
  10. CALCIUM DOBESILATE [Concomitant]

REACTIONS (3)
  - Transient ischaemic attack [Unknown]
  - Blood glucose increased [Unknown]
  - Glycosylated haemoglobin increased [Recovering/Resolving]
